FAERS Safety Report 8462137-X (Version None)
Quarter: 2012Q2

REPORT INFORMATION
  Report Type: 
  Country: None (occurrence: None)
  Receive Date: 20120625
  Receipt Date: 20120615
  Transmission Date: 20120825
  Serious: Yes (Other)
  Sender: FDA-Public Use
  Company Number: FR-JNJFOC-20120609690

PATIENT
  Sex: Female

DRUGS (3)
  1. REMICADE [Suspect]
     Dosage: SECOND INFUSION
     Route: 042
  2. REMICADE [Suspect]
     Indication: CROHN'S DISEASE
     Dosage: THIRD INFUSION
     Route: 042
  3. REMICADE [Suspect]
     Dosage: FIRST INFUSION
     Route: 042
     Dates: start: 20120101

REACTIONS (6)
  - GENERALISED ERYTHEMA [None]
  - CYANOSIS [None]
  - INFUSION RELATED REACTION [None]
  - OXYGEN SATURATION DECREASED [None]
  - VOMITING [None]
  - PYREXIA [None]
